FAERS Safety Report 9456180 (Version 1)
Quarter: 2013Q3

REPORT INFORMATION
  Report Type: Spontaneous
  Country: FR (occurrence: FR)
  Receive Date: 20130813
  Receipt Date: 20130813
  Transmission Date: 20140515
  Serious: Yes (Life-Threatening, Hospitalization, Other)
  Sender: FDA-Public Use
  Company Number: PHHY2013FR080696

PATIENT
  Sex: 0

DRUGS (2)
  1. DIGOXIN [Suspect]
     Dosage: 10 ?G/KG/DAY AT 8:00 A.M. AND 8:00 P.M. (I.E., 0.25 ML X 2/D)
  2. FUROSEMIDE [Concomitant]
     Dosage: 1 MG/KG, PER DAY

REACTIONS (6)
  - Toxicity to various agents [Recovering/Resolving]
  - Oxygen saturation decreased [Recovering/Resolving]
  - Hyperkalaemia [Recovering/Resolving]
  - Bradycardia [Recovering/Resolving]
  - Overdose [Recovering/Resolving]
  - Medication error [Unknown]
